FAERS Safety Report 13462718 (Version 2)
Quarter: 2017Q2

REPORT INFORMATION
  Report Type: Spontaneous
  Country: IL (occurrence: IL)
  Receive Date: 20170420
  Receipt Date: 20170512
  Transmission Date: 20170830
  Serious: Yes (Other)
  Sender: FDA-Public Use
  Company Number: IL-TAKEDA-2017TUS008602

PATIENT
  Age: 65 Year
  Sex: Male

DRUGS (2)
  1. FEBURIC [Suspect]
     Active Substance: FEBUXOSTAT
     Indication: HYPERURICAEMIA
     Dosage: 80 MG, QD
     Route: 065
     Dates: start: 20161212, end: 20170401
  2. COLCHICINE. [Concomitant]
     Active Substance: COLCHICINE
     Dosage: 0.5 G, BID
     Route: 065

REACTIONS (8)
  - Drug ineffective [Recovered/Resolved]
  - Burning sensation [Recovered/Resolved]
  - Rectal haemorrhage [Recovered/Resolved]
  - Constipation [Recovered/Resolved]
  - Abdominal pain [Recovered/Resolved]
  - Intestinal haemorrhage [Recovered/Resolved]
  - Haematochezia [Recovered/Resolved]
  - Colitis ulcerative [Recovered/Resolved]

NARRATIVE: CASE EVENT DATE: 201702
